FAERS Safety Report 7822996-8 (Version None)
Quarter: 2011Q4

REPORT INFORMATION
  Report Type: 
  Country: None (occurrence: None)
  Receive Date: 20111018
  Receipt Date: 20110414
  Transmission Date: 20120403
  Serious: No
  Sender: FDA-Public Use
  Company Number: US-ASTRAZENECA-2011SE01632

PATIENT
  Sex: Male

DRUGS (4)
  1. PERCOCET [Concomitant]
  2. LOTREL [Concomitant]
  3. PROVENTIL [Concomitant]
  4. SYMBICORT [Suspect]
     Route: 055
     Dates: start: 20100101

REACTIONS (2)
  - CHEST DISCOMFORT [None]
  - DRUG EFFECT DECREASED [None]
